FAERS Safety Report 10402116 (Version 1)
Quarter: 2014Q3

REPORT INFORMATION
  Report Type: Spontaneous
  Country: US (occurrence: US)
  Receive Date: 20140822
  Receipt Date: 20140822
  Transmission Date: 20150326
  Serious: Yes (Hospitalization, Other)
  Sender: FDA-Public Use
  Company Number: US-PAR PHARMACEUTICAL, INC-2014SCPR009333

PATIENT

DRUGS (3)
  1. DEXAMETHASONE. [Suspect]
     Active Substance: DEXAMETHASONE
     Indication: SEROSITIS
     Dosage: UNK, OD
     Route: 048
     Dates: start: 20140307, end: 20140319
  2. HYDROMORPHONE [Concomitant]
     Active Substance: HYDROMORPHONE
     Indication: PAIN
     Dosage: UNK, UNKNOWN
     Route: 065
     Dates: start: 20140214
  3. ASP2215 [Suspect]
     Active Substance: GILTERITINIB
     Indication: ACUTE MYELOID LEUKAEMIA
     Dosage: 80 MG, OD
     Route: 048
     Dates: start: 20140217

REACTIONS (3)
  - Osteonecrosis [Recovering/Resolving]
  - Disease progression [Unknown]
  - Leukocytosis [Unknown]

NARRATIVE: CASE EVENT DATE: 201403
